FAERS Safety Report 21690392 (Version 6)
Quarter: 2023Q2

REPORT INFORMATION
  Report Type: Report from Study
  Country: US (occurrence: US)
  Receive Date: 20221206
  Receipt Date: 20230404
  Transmission Date: 20230721
  Serious: Yes (Hospitalization)
  Sender: FDA-Public Use
  Company Number: US-002147023-NVSC2022US283090

PATIENT
  Sex: Female

DRUGS (2)
  1. KISQALI [Suspect]
     Active Substance: RIBOCICLIB
     Indication: Breast cancer
     Dosage: 200 MG, QD (MEDICATION HOLD ON 01 DEC 2022)
     Route: 048
     Dates: start: 20221001
  2. KISQALI [Suspect]
     Active Substance: RIBOCICLIB
     Dosage: 400 MG, QD (DOSE INCREASED)
     Route: 048

REACTIONS (4)
  - Femur fracture [Unknown]
  - Fall [Unknown]
  - Influenza [Unknown]
  - Cough [Unknown]
